FAERS Safety Report 16145233 (Version 1)
Quarter: 2019Q2

REPORT INFORMATION
  Report Type: Report from Study
  Country: US (occurrence: US)
  Receive Date: 20190402
  Receipt Date: 20190402
  Transmission Date: 20190711
  Serious: No
  Sender: FDA-Public Use
  Company Number: PHHY2019US074902

PATIENT
  Age: 42 Year
  Sex: Female

DRUGS (6)
  1. LINEZOLID. [Concomitant]
     Active Substance: LINEZOLID
     Indication: PRODUCT USED FOR UNKNOWN INDICATION
     Dosage: 2 DF, QD
     Route: 065
     Dates: start: 20190219, end: 20190308
  2. LAMPRENE [Suspect]
     Active Substance: CLOFAZIMINE
     Indication: TUBERCULOSIS
     Dosage: 50 MG, QD
     Route: 048
     Dates: start: 20190306, end: 20190308
  3. CYCLOSERINE. [Concomitant]
     Active Substance: CYCLOSERINE
     Indication: PRODUCT USED FOR UNKNOWN INDICATION
     Dosage: 2 DF, QD
     Route: 065
     Dates: start: 20190219, end: 20190308
  4. LINEZOLID. [Concomitant]
     Active Substance: LINEZOLID
     Dosage: 2 DF, QD
     Route: 065
     Dates: start: 20190312
  5. CYCLOSERINE. [Concomitant]
     Active Substance: CYCLOSERINE
     Dosage: 2 DF, QD
     Route: 065
     Dates: start: 20190312
  6. BEDAQUILINE [Concomitant]
     Active Substance: BEDAQUILINE
     Indication: PRODUCT USED FOR UNKNOWN INDICATION
     Dosage: 400 MG, QD (TWO WEEKS)
     Route: 065
     Dates: start: 20190326

REACTIONS (6)
  - Vision blurred [Recovered/Resolved]
  - Pruritus [Recovered/Resolved]
  - Throat irritation [Recovered/Resolved]
  - Fatigue [Unknown]
  - Asthenia [Recovered/Resolved]
  - Hunger [Recovered/Resolved]

NARRATIVE: CASE EVENT DATE: 20190308
